FAERS Safety Report 13734283 (Version 1)
Quarter: 2017Q3

REPORT INFORMATION
  Report Type: Spontaneous
  Country: FR (occurrence: FR)
  Receive Date: 20170708
  Receipt Date: 20170708
  Transmission Date: 20171127
  Serious: Yes (Other)
  Sender: FDA-Public Use
  Company Number: FR-009507513-1707FRA000417

PATIENT
  Sex: Female

DRUGS (9)
  1. CELESTENE 4MG/1ML [Suspect]
     Active Substance: BETAMETHASONE
     Dosage: STRENGTH 4MG/1ML
     Dates: start: 20161105, end: 20161109
  2. DEXAMETHASONE. [Suspect]
     Active Substance: DEXAMETHASONE
     Dosage: 6 MG/M2, DROM DAY 8 TO DAY 28
     Route: 064
     Dates: start: 20161105
  3. DAUNORUBICIN [Suspect]
     Active Substance: DAUNORUBICIN
     Dosage: AT DAY 22 AND AT DAY 29
  4. METHOTREXATE. [Suspect]
     Active Substance: METHOTREXATE
     Indication: MATURE B-CELL TYPE ACUTE LEUKAEMIA
     Dosage: UNK
     Route: 037
     Dates: start: 2016
  5. CELESTENE 4MG/1ML [Suspect]
     Active Substance: BETAMETHASONE
     Indication: MATURE B-CELL TYPE ACUTE LEUKAEMIA
     Dosage: STRENGTH 4MG/1ML
     Dates: start: 20161104, end: 20161109
  6. DEXAMETHASONE. [Suspect]
     Active Substance: DEXAMETHASONE
     Indication: PROPHYLAXIS
     Dosage: 6 MG/M2, FROM DAY 8 TO DAY 28
     Route: 064
     Dates: start: 20161104
  7. ONCOVIN [Suspect]
     Active Substance: VINCRISTINE SULFATE
     Indication: B PRECURSOR TYPE ACUTE LEUKAEMIA
     Dosage: 1.5 MG/M2 AT DAY 8, DAY 15, DAY 22, DAY 29
     Dates: start: 20161026
  8. PREDNISONE. [Suspect]
     Active Substance: PREDNISONE
     Indication: MATURE B-CELL TYPE ACUTE LEUKAEMIA
     Dosage: 45 MG X 2
     Route: 048
     Dates: start: 20161019
  9. ASPARAGINASE [Suspect]
     Active Substance: ASPARAGINASE
     Indication: B PRECURSOR TYPE ACUTE LEUKAEMIA
     Dosage: 6000 IU/M2 ONE DAY OUT OF 2 UNTIL DAY 28
     Dates: start: 2016

REACTIONS (1)
  - Premature delivery [Recovered/Resolved]
